FAERS Safety Report 13371470 (Version 2)
Quarter: 2017Q2

REPORT INFORMATION
  Report Type: Report from Study
  Country: None (occurrence: BE)
  Receive Date: 20170324
  Receipt Date: 20170403
  Transmission Date: 20170830
  Serious: Yes (Other)
  Sender: FDA-Public Use
  Company Number: BE-ABBVIE-17P-013-1915248-00

PATIENT
  Sex: Male
  Weight: 82 kg

DRUGS (4)
  1. DUODOPA [Suspect]
     Active Substance: CARBIDOPA\LEVODOPA
     Dosage: DOSAGES CONTINUOUSLY MONITORED AND ADJUSTED
     Route: 050
     Dates: start: 20120921, end: 20161208
  2. DUODOPA [Suspect]
     Active Substance: CARBIDOPA\LEVODOPA
     Dosage: UNKNOWN DOSAGE
     Route: 050
     Dates: start: 20170328
  3. DUODOPA [Suspect]
     Active Substance: CARBIDOPA\LEVODOPA
     Indication: PARKINSON^S DISEASE
     Dosage: AM:7ML; CD: 3.7ML/H FOR 16HRS; ED: 2ML
     Route: 050
     Dates: start: 20120917, end: 20120921
  4. DUODOPA [Suspect]
     Active Substance: CARBIDOPA\LEVODOPA
     Dosage: 4.3ML/H FOR 16HRS; ED: 3.3ML
     Route: 050
     Dates: start: 20161208, end: 201703

REACTIONS (1)
  - Jejunal ulcer [Unknown]
